FAERS Safety Report 20200534 (Version 4)
Quarter: 2022Q2

REPORT INFORMATION
  Report Type: Spontaneous
  Country: KR (occurrence: KR)
  Receive Date: 20211217
  Receipt Date: 20220509
  Transmission Date: 20220721
  Serious: Yes (Hospitalization)
  Sender: FDA-Public Use
  Company Number: KR-009507513-2112KOR005386

PATIENT
  Age: 68 Year
  Sex: Female
  Weight: 59.3 kg

DRUGS (20)
  1. PEMBROLIZUMAB [Suspect]
     Active Substance: PEMBROLIZUMAB
     Indication: Uterine cancer
     Dosage: TOTAL DAILY DOSE: 200 MG
     Route: 042
     Dates: start: 20210811, end: 20210811
  2. PEMBROLIZUMAB [Suspect]
     Active Substance: PEMBROLIZUMAB
     Dosage: TOTAL DAILY DOSE: 200 MG
     Route: 042
     Dates: start: 20210901, end: 20210901
  3. PEMBROLIZUMAB [Suspect]
     Active Substance: PEMBROLIZUMAB
     Dosage: TOTAL DAILY DOSE: 200 MG
     Route: 042
     Dates: start: 20210927, end: 20210927
  4. LENVATINIB MESYLATE [Suspect]
     Active Substance: LENVATINIB MESYLATE
     Indication: Uterine cancer
     Dosage: TOTAL DAILY DOSE: 10 MG
     Route: 048
     Dates: start: 20210811, end: 20211104
  5. DIMETHICONE\PANCRELIPASE\URSODIOL [Concomitant]
     Active Substance: DIMETHICONE\PANCRELIPASE\URSODIOL
     Dosage: TOTAL DAILY DOSE: 3 DOSAGE FORM
     Dates: start: 20210602, end: 20211101
  6. AMINO ACIDS\DEXTROSE\ELECTROLYTES NOS\SOYBEAN OIL\VITAMINS [Concomitant]
     Active Substance: AMINO ACIDS\DEXTROSE\ELECTROLYTES NOS\SOYBEAN OIL\VITAMINS
     Indication: Decreased appetite
     Dosage: TOTAL DAILY DOSE:1 BAG
     Route: 042
     Dates: start: 20210804, end: 20210813
  7. AMINO ACIDS\DEXTROSE\ELECTROLYTES NOS\SOYBEAN OIL\VITAMINS [Concomitant]
     Active Substance: AMINO ACIDS\DEXTROSE\ELECTROLYTES NOS\SOYBEAN OIL\VITAMINS
     Dosage: TOTAL DAILY DOSE:1 BAG
     Route: 042
     Dates: start: 20210817, end: 20210817
  8. AMINO ACIDS\DEXTROSE\ELECTROLYTES NOS\SOYBEAN OIL\VITAMINS [Concomitant]
     Active Substance: AMINO ACIDS\DEXTROSE\ELECTROLYTES NOS\SOYBEAN OIL\VITAMINS
     Dosage: TOTAL DAILY DOSE:1 BAG
     Route: 042
     Dates: start: 20210831, end: 20210904
  9. AMINO ACIDS\DEXTROSE\ELECTROLYTES NOS\SOYBEAN OIL\VITAMINS [Concomitant]
     Active Substance: AMINO ACIDS\DEXTROSE\ELECTROLYTES NOS\SOYBEAN OIL\VITAMINS
     Dosage: TOTAL DAILY DOSE:1 BAG
     Route: 042
     Dates: start: 20210923
  10. FENTANYL [Concomitant]
     Active Substance: FENTANYL
     Indication: Pain
     Dosage: TOTAL DAILY DOSE: 1 PATCH;12 MCGH 5.25 CM3, QD
     Route: 023
     Dates: start: 20210813, end: 20210905
  11. BEECOM HEXA [Concomitant]
     Indication: Decreased appetite
     Dosage: TOTAL DAILY DOSE: 1 AMPULE, QD
     Route: 042
     Dates: start: 20210905, end: 20210905
  12. DAIHAN VITAMIN C [Concomitant]
     Indication: Decreased appetite
     Dosage: TOTAL DAILY DOSE: 1 AMPULE; STRENGTH 100MG/2ML
     Route: 042
     Dates: start: 20210905, end: 20210905
  13. MACPERAN [METOCLOPRAMIDE] [Concomitant]
     Indication: Nausea
     Dosage: TOTAL DAILY DOSE: 3 DOSAGE FORM
     Route: 048
     Dates: start: 20210906, end: 20211101
  14. NEXILEN [Concomitant]
     Indication: Nausea
     Dosage: TOTAL DAILY DOSE:2 DOSAGE FORM
     Route: 048
     Dates: start: 20210906, end: 20211101
  15. TENORMIN [Concomitant]
     Active Substance: ATENOLOL
     Indication: Hypertension
     Dosage: 1 TABLET DAILY
     Route: 048
     Dates: start: 20210910
  16. IBUPROFEN [Concomitant]
     Active Substance: IBUPROFEN
     Indication: Productive cough
     Dosage: 3 TABLETS DAILY
     Route: 048
     Dates: start: 20210902, end: 20210923
  17. AUGMEX DUO [Concomitant]
     Indication: Productive cough
     Dosage: 3 TAB DAILY
     Route: 048
  18. BENZYDAMINE HYDROCHLORIDE [Concomitant]
     Active Substance: BENZYDAMINE HYDROCHLORIDE
     Indication: Productive cough
     Dosage: 100 MILLILITER DAILY
     Route: 049
     Dates: start: 20210902
  19. PROAMIN [Concomitant]
     Indication: Decreased appetite
     Dosage: 1 BTL DAILY
     Route: 042
     Dates: start: 20210905, end: 20210905
  20. MACPERAN [METOCLOPRAMIDE] [Concomitant]
     Indication: Nausea
     Dosage: TOTAL DAILY DOSE: 1 AMPULE
     Route: 042
     Dates: start: 20210905

REACTIONS (2)
  - Urinary tract infection [Recovered/Resolved]
  - Product use issue [Unknown]

NARRATIVE: CASE EVENT DATE: 20210917
